FAERS Safety Report 19855979 (Version 1)
Quarter: 2021Q3

REPORT INFORMATION
  Report Type: Spontaneous
  Country: US (occurrence: US)
  Receive Date: 20210920
  Receipt Date: 20210920
  Transmission Date: 20211014
  Serious: Yes (Death)
  Sender: FDA-Public Use
  Company Number: None

PATIENT
  Age: 60 Year
  Sex: Male
  Weight: 83 kg

DRUGS (1)
  1. TOCILIZUMAB (TOCILIZUMAB 20MG/ML INJ,SOLN,20ML) [Suspect]
     Active Substance: TOCILIZUMAB
     Indication: UPPER RESPIRATORY TRACT INFECTION
     Route: 042
     Dates: start: 20210812, end: 20210812

REACTIONS (14)
  - Staphylococcus test positive [None]
  - Urine output decreased [None]
  - Disease progression [None]
  - Renal impairment [None]
  - Labile blood pressure [None]
  - Hypoxia [None]
  - Respiratory disorder [None]
  - Hypercapnia [None]
  - Oxygen saturation decreased [None]
  - Hypotension [None]
  - Pyrexia [None]
  - Serratia test positive [None]
  - General physical health deterioration [None]
  - Blood gases abnormal [None]

NARRATIVE: CASE EVENT DATE: 20210910
